FAERS Safety Report 12233820 (Version 1)
Quarter: 2016Q2

REPORT INFORMATION
  Report Type: Spontaneous
  Country: US (occurrence: US)
  Receive Date: 20160404
  Receipt Date: 20160404
  Transmission Date: 20160815
  Serious: No
  Sender: FDA-Public Use
  Company Number: US-BAYER-2016-059068

PATIENT
  Sex: Male

DRUGS (1)
  1. LOTRIMIN ULTRA [Suspect]
     Active Substance: BUTENAFINE HYDROCHLORIDE
     Indication: PRURITUS
     Dosage: UNK
     Route: 061
     Dates: start: 20160317, end: 20160320

REACTIONS (2)
  - Rash erythematous [Not Recovered/Not Resolved]
  - Pruritus [Not Recovered/Not Resolved]
